FAERS Safety Report 4842721-2 (Version None)
Quarter: 2005Q4

REPORT INFORMATION
  Report Type: 
  Country: None (occurrence: None)
  Receive Date: 20051201
  Receipt Date: 20051123
  Transmission Date: 20060501
  Serious: Yes (Death, Hospitalization)
  Sender: FDA-Public Use
  Company Number: US-MERCK-0511USA04260

PATIENT
  Age: 76 Year
  Sex: Female
  Weight: 82 kg

DRUGS (7)
  1. VIOXX [Suspect]
     Indication: ARTHRITIS
     Route: 048
     Dates: start: 20001025, end: 20010509
  2. SYNTHROID [Concomitant]
     Route: 065
  3. TYLENOL [Concomitant]
     Route: 065
  4. DURAGESIC-100 [Concomitant]
     Route: 065
  5. DAYPRO [Concomitant]
     Route: 065
  6. HYDROCODONE BITARTRATE [Concomitant]
     Route: 065
  7. [THERAPY UNSPECIFIED] [Concomitant]
     Route: 065

REACTIONS (8)
  - ARTHROPATHY [None]
  - CHEST PAIN [None]
  - DIVERTICULITIS [None]
  - HEADACHE [None]
  - PAIN IN EXTREMITY [None]
  - PAIN IN JAW [None]
  - SPINAL COLUMN STENOSIS [None]
  - SUDDEN DEATH [None]
